FAERS Safety Report 14259077 (Version 1)
Quarter: 2017Q4

REPORT INFORMATION
  Report Type: Report from Study
  Country: US (occurrence: US)
  Receive Date: 20171207
  Receipt Date: 20171207
  Transmission Date: 20180321
  Serious: Yes (Hospitalization)
  Sender: FDA-Public Use
  Company Number: US-SHIRE-US201729913

PATIENT
  Age: 65 Year
  Sex: Female

DRUGS (1)
  1. NATPARA (PARATHYROID HORMONE) [Suspect]
     Active Substance: PARATHYROID HORMONE
     Indication: PRODUCT USED FOR UNKNOWN INDICATION
     Dosage: 50 ?G, 1X/DAY:QD
     Route: 058
     Dates: start: 20170504, end: 20171114

REACTIONS (5)
  - Drug dose omission [Recovered/Resolved]
  - Wrong technique in product usage process [Recovered/Resolved]
  - Hypocalcaemia [Recovered/Resolved]
  - Product leakage [Unknown]
  - Wrong technique in product usage process [Recovered/Resolved]

NARRATIVE: CASE EVENT DATE: 20171112
